FAERS Safety Report 9431871 (Version 6)
Quarter: 2014Q2

REPORT INFORMATION
  Report Type: Spontaneous
  Country: US (occurrence: None)
  Receive Date: 20130726
  Receipt Date: 20140609
  Transmission Date: 20141212
  Serious: Yes (Other)
  Sender: FDA-Public Use
  Company Number: AEGR000081

PATIENT
  Age: 71 Year
  Sex: Female
  Weight: 63.5 kg

DRUGS (27)
  1. JUXTAPID [Suspect]
     Indication: TYPE IIA HYPERLIPIDAEMIA
     Route: 048
     Dates: start: 201302, end: 2013
  2. ALPRAZOLAM (ALPRAZOLAM) [Concomitant]
  3. AMLODIPINE (AMLODIPINE BESILATE) [Concomitant]
  4. ASPIRIN (ACETYLSALICYLIC ACID) [Concomitant]
  5. CINNAMON (CINNAMON) [Concomitant]
  6. CITALOPRAM [Concomitant]
  7. COENZYME Q10 (UBIDECARENONE) [Concomitant]
  8. ZETIA (EZETIMIBE) [Concomitant]
  9. IRON (FERROUS SULFATE) [Concomitant]
  10. NORCO (HYDROCODONE BITARTRATE, PARACETAMOL) [Concomitant]
  11. PREVACID (LANSOPRAZOLE) [Concomitant]
  12. NIACIN (NICOTINIC ACID) [Concomitant]
  13. ASACOL (MESALAZINE) MODIFIED-RELEASE TABLET, 400 MG [Concomitant]
  14. CHROMIUM PICOLINATE (CHROMIUM PICOLINATE) [Concomitant]
  15. PLANT STEROL (SITOSTEROL, STIGMASTANOL) [Concomitant]
  16. EFFIENT (PRASUGREL HYDROCHLORIDE) [Concomitant]
  17. FERROUS GLUCONATE (FEROUS GLUCONATE) [Concomitant]
  18. LEVOTHYROXINE SODIUM (LEVOTHYROXINE SODIUM) [Concomitant]
  19. VITAMIN D3 (COLECALCIFEROL) [Concomitant]
  20. LEVOCARNITINE (LEVOCARNITINE HYDROCHLORIDE) [Concomitant]
  21. LORAZEPAM (LORAZEPAM) [Concomitant]
  22. VITAMIN B COMPLEX (CALCIUM PANTOTHENATE, NICOTINAMIDE, PYRIDOXINE HYDROCHLORIDE, RIBOFLAVIN, THIAMINE HYDROCHLORIDE) [Concomitant]
  23. TOPROL (METOPROLOL SUCCINATE) [Concomitant]
  24. MAGNESIUM GLUCONATE (MAGNESIUM GLUCONATE) [Concomitant]
  25. VASOTEC (ENALAPRIL MALEATE) [Concomitant]
  26. TRAZODONE HCL (TRAZODONE HYDROCHLORIDE) [Concomitant]
  27. NITROSTAT (GLYCERYL TRINITRATE) [Concomitant]

REACTIONS (16)
  - Coronary artery occlusion [None]
  - Myocardial ischaemia [None]
  - Abdominal pain [None]
  - Diarrhoea [None]
  - Nausea [None]
  - Fatigue [None]
  - Alanine aminotransferase increased [None]
  - Aspartate aminotransferase increased [None]
  - Mesenteric artery stenosis [None]
  - Renal artery stenosis [None]
  - Vascular graft occlusion [None]
  - Ejection fraction decreased [None]
  - Blood pressure diastolic decreased [None]
  - Renal artery occlusion [None]
  - Weight decreased [None]
  - Coronary artery restenosis [None]
